FAERS Safety Report 8544151-9 (Version None)
Quarter: 2012Q3

REPORT INFORMATION
  Report Type: 
  Country: None (occurrence: None)
  Receive Date: 20120727
  Receipt Date: 20120717
  Transmission Date: 20120928
  Serious: Yes (Hospitalization)
  Sender: FDA-Public Use
  Company Number: US-BAYER-2011-124603

PATIENT
  Age: 43 Year
  Sex: Female

DRUGS (13)
  1. YAZ [Suspect]
     Indication: DYSFUNCTIONAL UTERINE BLEEDING
  2. YAZ [Suspect]
     Indication: VAGINAL HAEMORRHAGE
  3. FLEXERIL [Concomitant]
     Dosage: UNK
  4. YAZ [Suspect]
     Indication: MENSTRUATION IRREGULAR
     Dosage: UNK
     Route: 048
     Dates: start: 20080901, end: 20090801
  5. SINGULAIR [Concomitant]
     Dosage: UNK
  6. ALLEGRA-D 12 HOUR [Concomitant]
     Dosage: UNK
  7. ALLEGRA [Concomitant]
     Dosage: UNK
  8. ACIPHEX [Concomitant]
     Dosage: UNK
  9. CELEBREX [Concomitant]
     Dosage: 200 MG, UNK
     Route: 048
     Dates: start: 20090514
  10. ADVAIR DISKUS 100/50 [Concomitant]
     Dosage: UNK
  11. TRAMADOL HYDROCHLORIDE [Concomitant]
     Dosage: 50 MG, UNK
     Route: 048
     Dates: start: 20090729
  12. VICODIN [Concomitant]
     Dosage: UNK
  13. HYDROCODONE BITARTRATE AND ACETAMINOPHEN [Concomitant]
     Dosage: 5MG/500MG
     Route: 048
     Dates: start: 20090518

REACTIONS (4)
  - DEEP VEIN THROMBOSIS [None]
  - INJURY [None]
  - PAIN [None]
  - EMOTIONAL DISTRESS [None]
